FAERS Safety Report 24241956 (Version 1)
Quarter: 2024Q3

REPORT INFORMATION
  Report Type: Spontaneous
  Country: ES (occurrence: ES)
  Receive Date: 20240823
  Receipt Date: 20240823
  Transmission Date: 20241017
  Serious: Yes (Life-Threatening, Hospitalization, Other)
  Sender: TEVA
  Company Number: None

PATIENT
  Age: 64 Year
  Sex: Female
  Weight: 54 kg

DRUGS (2)
  1. BENDAMUSTINE [Suspect]
     Active Substance: BENDAMUSTINE
     Indication: Waldenstrom^s macroglobulinaemia
     Dosage: 70MG/M2 - 121MG IN CYCLES, FIRST CYCLE 5/04, LAST CYCLE 2024-06-19
     Route: 042
     Dates: start: 20240405, end: 20240619
  2. RITUXIMAB [Suspect]
     Active Substance: RITUXIMAB
     Indication: Product used for unknown indication
     Dosage: 375MG/M2 - 648MG IN CYCLES (LAST CYCLE 2024-06-19)
     Route: 042
     Dates: start: 20240405, end: 20240619

REACTIONS (2)
  - Agranulocytosis [Recovered/Resolved]
  - Abdominal sepsis [Recovered/Resolved]

NARRATIVE: CASE EVENT DATE: 20240720
